FAERS Safety Report 9465371 (Version 4)
Quarter: 2014Q1

REPORT INFORMATION
  Report Type: Spontaneous
  Country: US (occurrence: US)
  Receive Date: 20130820
  Receipt Date: 20140131
  Transmission Date: 20141002
  Serious: Yes (Hospitalization, Other)
  Sender: FDA-Public Use
  Company Number: US-BIOGENIDEC-2013BI051560

PATIENT
  Age: 29 Year
  Sex: Female

DRUGS (10)
  1. TECFIDERA [Suspect]
     Indication: MULTIPLE SCLEROSIS
     Route: 048
     Dates: start: 201305, end: 201306
  2. TECFIDERA [Suspect]
     Indication: MULTIPLE SCLEROSIS
     Route: 048
     Dates: start: 201306
  3. EFFEXOR XR [Concomitant]
  4. TIZANIDINE HCL [Concomitant]
  5. DILAUDID- HP [Concomitant]
  6. PRAVASTATIN [Concomitant]
  7. ZOLPIDEM [Concomitant]
  8. NEURONTIN [Concomitant]
  9. HUMIRA [Concomitant]
  10. TROSPIUM [Concomitant]

REACTIONS (8)
  - Renal failure [Recovered/Resolved]
  - Hysterectomy [Recovered/Resolved]
  - Post procedural complication [Unknown]
  - Flushing [Not Recovered/Not Resolved]
  - Abdominal pain upper [Unknown]
  - Pruritus [Unknown]
  - Hot flush [Not Recovered/Not Resolved]
  - Furuncle [Recovered/Resolved]
